FAERS Safety Report 5728609-3 (Version None)
Quarter: 2008Q2

REPORT INFORMATION
  Report Type: 
  Country: None (occurrence: None)
  Receive Date: 20080502
  Receipt Date: 20080502
  Transmission Date: 20081010
  Serious: Yes (Hospitalization)
  Sender: FDA-Public Use
  Company Number: None

PATIENT
  Age: 70 Year
  Sex: Male
  Weight: 104 kg

DRUGS (12)
  1. KETOCONAZOLE [Suspect]
     Indication: PROSTATE CANCER
     Dosage: 400MG TID PO
     Route: 048
     Dates: start: 20070503
  2. CC-5013 -CELGENE- 5MG CAPS [Suspect]
     Indication: PROSTATE CANCER
     Dosage: 20MG DAILY
     Dates: start: 20070503
  3. COUMADIN [Concomitant]
  4. VITAMIN E/FLAXSEED OIL (OMEGA-3 FLAXSEED OIL) [Concomitant]
  5. REMERON [Concomitant]
  6. HYDROCORTISONE [Concomitant]
  7. RESEARCH MEDICATION [Concomitant]
  8. LEUPROLIDE ACETATE [Concomitant]
  9. AMARYL [Concomitant]
  10. OLMESARTAN-HYDROCHLORIDE (BENICAR HCT) [Concomitant]
  11. MULTIVITAMINS-MINERALS-LUTEIN (CENTRUM SILVER) [Concomitant]
  12. ALPHA TOCOPHERYL ACETATE (NATURAL VITAMIN E) [Concomitant]

REACTIONS (4)
  - COUGH [None]
  - DIARRHOEA [None]
  - PYREXIA [None]
  - VOMITING [None]
